FAERS Safety Report 21658430 (Version 2)
Quarter: 2023Q1

REPORT INFORMATION
  Report Type: Spontaneous
  Country: ES (occurrence: ES)
  Receive Date: 20221129
  Receipt Date: 20230222
  Transmission Date: 20230418
  Serious: Yes (Hospitalization, Other)
  Sender: FDA-Public Use
  Company Number: ES-SA-SAC20221128000610

PATIENT
  Age: 40 Year
  Sex: Male

DRUGS (1)
  1. FABRAZYME [Suspect]
     Active Substance: AGALSIDASE BETA
     Route: 065

REACTIONS (4)
  - Pulmonary embolism [Recovered/Resolved]
  - Chronic kidney disease [Unknown]
  - Drug intolerance [Unknown]
  - Proteinuria [Unknown]

NARRATIVE: CASE EVENT DATE: 20180101
